FAERS Safety Report 8060455-0 (Version None)
Quarter: 2012Q1

REPORT INFORMATION
  Report Type: 
  Country: None (occurrence: None)
  Receive Date: 20120120
  Receipt Date: 20120110
  Transmission Date: 20120608
  Serious: Yes (Other)
  Sender: FDA-Public Use
  Company Number: JP-GLAXOSMITHKLINE-B0775350A

PATIENT
  Age: 8 Year
  Sex: Female

DRUGS (1)
  1. VALTREX [Suspect]
     Indication: VARICELLA
     Dosage: 1500MG PER DAY
     Route: 048
     Dates: start: 20120106, end: 20120110

REACTIONS (1)
  - DELIRIUM [None]
